FAERS Safety Report 11374972 (Version 1)
Quarter: 2015Q3

REPORT INFORMATION
  Report Type: Spontaneous
  Country: US (occurrence: US)
  Receive Date: 20150813
  Receipt Date: 20150813
  Transmission Date: 20151125
  Serious: No
  Sender: FDA-Public Use
  Company Number: US-AMGEN-USASP2015080859

PATIENT
  Age: 55 Year
  Sex: Female

DRUGS (4)
  1. ENBREL [Suspect]
     Active Substance: ETANERCEPT
     Indication: RHEUMATOID ARTHRITIS
     Dosage: UNK UNK, QWK
     Route: 065
  2. PROPANOLOL  ER                       /00030001/ [Concomitant]
     Dosage: UNK
  3. LEFLUNOMIDE. [Concomitant]
     Active Substance: LEFLUNOMIDE
     Dosage: UNK
  4. LORAZEPAM. [Concomitant]
     Active Substance: LORAZEPAM
     Dosage: UNK

REACTIONS (12)
  - Body temperature abnormal [Unknown]
  - Pyrexia [Unknown]
  - Drug hypersensitivity [Unknown]
  - Malaise [Unknown]
  - Chills [Unknown]
  - Eye pain [Unknown]
  - Headache [Unknown]
  - Eczema [Unknown]
  - Ocular discomfort [Unknown]
  - Cough [Unknown]
  - Rash [Unknown]
  - Sinusitis [Unknown]

NARRATIVE: CASE EVENT DATE: 2015
